FAERS Safety Report 12350979 (Version 1)
Quarter: 2016Q2

REPORT INFORMATION
  Report Type: Other
  Country: FR (occurrence: FR)
  Receive Date: 20160510
  Receipt Date: 20160510
  Transmission Date: 20160815
  Serious: Yes (Hospitalization, Other)
  Sender: FDA-Public Use
  Company Number: FR-ASTELLAS-2016US018330

PATIENT
  Age: 60 Year
  Sex: Male

DRUGS (6)
  1. AMBISOME [Suspect]
     Active Substance: AMPHOTERICIN B
     Indication: INFECTION
  2. RIFADINE                           /00146901/ [Concomitant]
     Active Substance: RIFAMPIN
     Route: 065
     Dates: start: 20160105
  3. RIFADINE                           /00146901/ [Concomitant]
     Active Substance: RIFAMPIN
     Indication: ENCEPHALOPATHY
     Route: 065
  4. AMBISOME [Suspect]
     Active Substance: AMPHOTERICIN B
     Indication: STAPHYLOCOCCAL SEPSIS
     Route: 042
     Dates: start: 20160108, end: 20160111
  5. CEFAZOLINE MYLAN [Concomitant]
     Active Substance: CEFAZOLIN SODIUM
     Indication: ENCEPHALOPATHY
     Dosage: UNK UNK, UNKNOWN FREQ.
     Route: 065
  6. CEFAZOLINE MYLAN [Concomitant]
     Active Substance: CEFAZOLIN SODIUM
     Dosage: 3 G, (2 GMS DAILY PLUS 1GM DAILY AFTER DIALYSIS)
     Route: 065
     Dates: start: 20160105

REACTIONS (2)
  - Seizure [Recovered/Resolved]
  - Toxicity to various agents [Recovered/Resolved]

NARRATIVE: CASE EVENT DATE: 20160111
